FAERS Safety Report 11650038 (Version 2)
Quarter: 2015Q4

REPORT INFORMATION
  Report Type: Spontaneous
  Country: IT (occurrence: IT)
  Receive Date: 20151021
  Receipt Date: 20151202
  Transmission Date: 20160304
  Serious: Yes (Other)
  Sender: FDA-Public Use
  Company Number: IT-ABBVIE-15P-083-1481905-00

PATIENT
  Age: 42 Year
  Sex: Female

DRUGS (1)
  1. KALETRA [Suspect]
     Active Substance: LOPINAVIR\RITONAVIR
     Indication: HIV INFECTION
     Route: 048
     Dates: start: 20080101, end: 20140103

REACTIONS (2)
  - Osteoporosis [Recovering/Resolving]
  - Lipodystrophy acquired [Recovering/Resolving]

NARRATIVE: CASE EVENT DATE: 20140103
